FAERS Safety Report 9217638 (Version 1)
Quarter: 2013Q2

REPORT INFORMATION
  Report Type: Spontaneous
  Country: SA (occurrence: SA)
  Receive Date: 20130408
  Receipt Date: 20130408
  Transmission Date: 20140414
  Serious: Yes (Death)
  Sender: FDA-Public Use
  Company Number: SA-ABBOTT-13P-259-1073828-00

PATIENT
  Age: 30 Week
  Sex: Male

DRUGS (3)
  1. SURVANTA [Suspect]
     Indication: PRODUCT USED FOR UNKNOWN INDICATION
  2. GENTAMICIN [Concomitant]
     Indication: PRODUCT USED FOR UNKNOWN INDICATION
  3. AMPICILLIN [Concomitant]
     Indication: PRODUCT USED FOR UNKNOWN INDICATION

REACTIONS (1)
  - Pulmonary haemorrhage [Fatal]
